FAERS Safety Report 6253269-5 (Version None)
Quarter: 2009Q2

REPORT INFORMATION
  Report Type: 
  Country: None (occurrence: None)
  Receive Date: 20090625
  Receipt Date: 20090316
  Transmission Date: 20091009
  Serious: Yes (Hospitalization)
  Sender: FDA-Public Use
  Company Number: DSU-2009-00651

PATIENT
  Age: 87 Year
  Sex: Female
  Weight: 136.0791 kg

DRUGS (4)
  1. BENICAR [Suspect]
     Indication: HYPERTENSION
     Dosage: 20 MG (20 MG,QD),PER ORAL
     Route: 048
     Dates: start: 20090310, end: 20090101
  2. CARDIZEM (DILTIAZEM HYDROCHLORIDE) (60 MILLIGRAM, TABLET) (DILTIAZEM H [Concomitant]
  3. ATENOLOL (ATENOLOL) (TABLET) (ATENOLOL) [Concomitant]
  4. HYDRALAZINE (HYDRALAZINE) (150 MILLIGRAM, TABLET) (HYDRALAZINE) [Concomitant]

REACTIONS (1)
  - RENAL FAILURE [None]
